FAERS Safety Report 7921622 (Version 3)
Quarter: 2014Q1

REPORT INFORMATION
  Report Type: Spontaneous
  Country: US (occurrence: US)
  Receive Date: 20110429
  Receipt Date: 20140103
  Transmission Date: 20141002
  Serious: No
  Sender: FDA-Public Use
  Company Number: US-ASTRAZENECA-2010SE46726

PATIENT
  Age: 430 Month
  Sex: Female

DRUGS (3)
  1. NEXIUM [Suspect]
     Indication: GASTROOESOPHAGEAL REFLUX DISEASE
     Route: 048
     Dates: end: 201312
  2. PHENTERMINE [Concomitant]
     Indication: MEDICAL DIET
  3. TYLENOL [Concomitant]
     Indication: HEADACHE

REACTIONS (8)
  - Fear of eating [Unknown]
  - Dyspepsia [Unknown]
  - Dyspepsia [Unknown]
  - Hypophagia [Unknown]
  - Nausea [Unknown]
  - Vomiting [Unknown]
  - Intentional drug misuse [Unknown]
  - Intentional drug misuse [Unknown]
